FAERS Safety Report 10519234 (Version 1)
Quarter: 2014Q4

REPORT INFORMATION
  Report Type: Spontaneous
  Country: None (occurrence: US)
  Receive Date: 20141015
  Receipt Date: 20141015
  Transmission Date: 20150528
  Serious: No
  Sender: FDA-Public Use
  Company Number: US-EISAI MEDICAL RESEARCH-EC-2014-000745

PATIENT
  Age: 14 Year
  Sex: Female
  Weight: 64 kg

DRUGS (5)
  1. FYCOMPA [Suspect]
     Active Substance: PERAMPANEL
     Route: 048
     Dates: start: 201410
  2. FYCOMPA [Suspect]
     Active Substance: PERAMPANEL
     Dosage: GREATER THAN 8 MG
     Route: 048
     Dates: start: 2014, end: 201409
  3. FYCOMPA [Suspect]
     Active Substance: PERAMPANEL
     Indication: SEIZURE
     Dosage: TITRATED UP (TITRATION DOSING UNSPECIFIED)
     Route: 048
     Dates: start: 2014, end: 2014
  4. FYCOMPA [Suspect]
     Active Substance: PERAMPANEL
     Route: 048
     Dates: start: 201409, end: 201410
  5. FYCOMPA [Suspect]
     Active Substance: PERAMPANEL
     Route: 048
     Dates: start: 201410, end: 201410

REACTIONS (2)
  - Abnormal behaviour [Unknown]
  - Agitation [Unknown]

NARRATIVE: CASE EVENT DATE: 2014
